FAERS Safety Report 7830196-0 (Version None)
Quarter: 2011Q4

REPORT INFORMATION
  Report Type: 
  Country: None (occurrence: None)
  Receive Date: 20111021
  Receipt Date: 20111013
  Transmission Date: 20120403
  Serious: Yes (Other)
  Sender: FDA-Public Use
  Company Number: PHHY2010CA57014

PATIENT

DRUGS (7)
  1. RASILEZ [Suspect]
     Indication: BLOOD PRESSURE
     Dosage: 150 MG,
     Route: 048
  2. BETA BLOCKING AGENTS [Concomitant]
  3. DIURETICS [Concomitant]
  4. MONOCOR [Concomitant]
  5. RASILEZ [Suspect]
     Dosage: 300 MG,
     Dates: start: 20110910
  6. ACE INHIBITOR NOS [Concomitant]
  7. CALCIUM CHANNEL BLOCKERS [Concomitant]

REACTIONS (3)
  - BLOOD PRESSURE DIASTOLIC DECREASED [None]
  - URINE ALBUMIN/CREATININE RATIO INCREASED [None]
  - BLOOD PRESSURE SYSTOLIC INCREASED [None]
